FAERS Safety Report 6968341-1 (Version None)
Quarter: 2010Q3

REPORT INFORMATION
  Report Type: 
  Country: None (occurrence: None)
  Receive Date: 20100907
  Receipt Date: 20100826
  Transmission Date: 20110219
  Serious: Yes (Hospitalization)
  Sender: FDA-Public Use
  Company Number: FR-ROCHE-723823

PATIENT
  Age: 80 Year
  Sex: Female

DRUGS (6)
  1. CELLCEPT [Suspect]
     Indication: LEWIS-SUMNER SYNDROME
     Route: 065
     Dates: start: 20100625, end: 20100805
  2. RASILEZ [Suspect]
     Dosage: FORM: COATED TABLET
     Route: 048
     Dates: start: 20100727, end: 20100805
  3. IPERTEN [Suspect]
     Route: 048
     Dates: start: 20100727, end: 20100805
  4. KARDEGIC [Concomitant]
     Dosage: FORM: POWDER FOR ORAL SOLUTION
     Route: 048
  5. PRAVASTATIN [Concomitant]
     Dosage: DERUG:PRAVASTATINE SODIQUE
  6. FOSAVANCE [Concomitant]

REACTIONS (3)
  - HYPOKALAEMIA [None]
  - HYPONATRAEMIA [None]
  - MOTOR DYSFUNCTION [None]
